FAERS Safety Report 22309730 (Version 1)
Quarter: 2023Q2

REPORT INFORMATION
  Report Type: Spontaneous
  Country: SK (occurrence: SK)
  Receive Date: 20230511
  Receipt Date: 20230511
  Transmission Date: 20230721
  Serious: Yes (Death, Other)
  Sender: FDA-Public Use
  Company Number: SK-SUN PHARMACEUTICAL INDUSTRIES LTD-2023R1-388124

PATIENT
  Age: 56 Year
  Sex: Male

DRUGS (5)
  1. VENLAFAXINE [Suspect]
     Active Substance: VENLAFAXINE HYDROCHLORIDE
     Indication: Schizophrenia
     Dosage: UNK
     Route: 065
  2. QUETIAPINE [Suspect]
     Active Substance: QUETIAPINE
     Indication: Schizophrenia
     Dosage: 600 MILLIGRAM, DAILY
     Route: 065
  3. PALIPERIDONE [Concomitant]
     Active Substance: PALIPERIDONE
     Indication: Schizophrenia
     Dosage: 9 MILLIGRAM, DAILY
     Route: 065
  4. VALPROATE SODIUM [Concomitant]
     Active Substance: VALPROATE SODIUM
     Indication: Schizophrenia
     Dosage: 300 MILLIGRAM, DAILY
     Route: 065
  5. ZUCLOPENTHIXOL DECANOATE [Concomitant]
     Active Substance: ZUCLOPENTHIXOL DECANOATE
     Indication: Schizophrenia
     Dosage: 200 MILLIGRAM
     Route: 065

REACTIONS (9)
  - Electrocardiogram QT prolonged [Fatal]
  - Arrhythmia [Fatal]
  - Arteriosclerosis [Unknown]
  - Left ventricular hypertrophy [Unknown]
  - Cardiac valve sclerosis [Unknown]
  - Pulmonary oedema [Unknown]
  - Pulmonary haemorrhage [Unknown]
  - Brain oedema [Unknown]
  - Myocarditis [Unknown]
